FAERS Safety Report 8439347 (Version 2)
Quarter: 2013Q2

REPORT INFORMATION
  Report Type: Spontaneous
  Country: US (occurrence: None)
  Receive Date: 20120104
  Receipt Date: 20120508
  Transmission Date: 20140414
  Serious: Yes (Other)
  Sender: FDA-Public Use
  Company Number: 2011HGS-002861

PATIENT
  Age: 69 Year
  Sex: Female
  Weight: 109.77 kg

DRUGS (12)
  1. BENLYSTA [Suspect]
     Indication: SYSTEMIC LUPUS ERYTHEMATOSUS
     Dosage: 10 MG/KG, 1 IN 28 D, INTRAVENOUS DRIP
     Route: 041
     Dates: start: 20110725
  2. ALLOPURINOL [Concomitant]
  3. ZOLOFT [Concomitant]
  4. VITAMINS (VITAMINS NOS) (VITAMINS NOS) [Concomitant]
  5. POTASSIUM (POTASSIUM) (POTASSIUM) [Concomitant]
  6. LEVOTHYROXINE (LEVOTHYROIXNE) (LEVOTHYROXINE) [Concomitant]
  7. NORCO (VICODIN) (PARACETAMOL, HYDROCODONE BITARTRATE) [Concomitant]
  8. VITAMIN K (PHYTOMENADIONE) (PHYTOMENADIONE) [Concomitant]
  9. ESTROGEN (ESTROGEN NOS) (ESTROGEN NOS) [Concomitant]
  10. LANUST (INSULIN GLARGINE) (INSULIN GLARGINE) [Concomitant]
  11. VITAMIN K(VITAMIN K NOS)(VITAMIN K NOS) [Concomitant]
  12. DIURETIC(DIURETICS)(NULL) [Concomitant]

REACTIONS (6)
  - GOUT [None]
  - DIABETES MELLITUS [None]
  - Thirst [None]
  - Abdominal tenderness [None]
  - Abdominal pain upper [None]
  - Cystitis [None]
